FAERS Safety Report 17277344 (Version 1)
Quarter: 2020Q1

REPORT INFORMATION
  Report Type: Report from Study
  Country: GB (occurrence: GB)
  Receive Date: 20200116
  Receipt Date: 20200116
  Transmission Date: 20200409
  Serious: Yes (Hospitalization)
  Sender: FDA-Public Use
  Company Number: GB-JNJFOC-20200116595

PATIENT
  Sex: Male

DRUGS (1)
  1. STELARA [Suspect]
     Active Substance: USTEKINUMAB
     Indication: PSORIASIS
     Route: 058
     Dates: start: 20191001

REACTIONS (5)
  - Off label use [Unknown]
  - Urinary tract infection [Unknown]
  - Pneumonia [Unknown]
  - Product use issue [Unknown]
  - Dehydration [Unknown]
